FAERS Safety Report 22868821 (Version 3)
Quarter: 2024Q4

REPORT INFORMATION
  Report Type: Spontaneous
  Country: US (occurrence: US)
  Receive Date: 20230825
  Receipt Date: 20241219
  Transmission Date: 20250115
  Serious: No
  Sender: PFIZER
  Company Number: US-PFIZER INC-PV202300112187

PATIENT
  Age: 78 Year
  Sex: Female

DRUGS (1)
  1. IBRANCE [Suspect]
     Active Substance: PALBOCICLIB
     Indication: Breast cancer female
     Dosage: 125 MG, CYCLIC (TAKE BY MOUTH ONE-TIME DAILY 1-21 FOLLOWED BY 7 DAYS OFF, SWALLOW WHOLE WITH FOOD)
     Route: 048

REACTIONS (2)
  - Apathy [Unknown]
  - Fatigue [Unknown]
